FAERS Safety Report 10078527 (Version 3)
Quarter: 2014Q3

REPORT INFORMATION
  Report Type: Spontaneous
  Country: US (occurrence: None)
  Receive Date: 20140411
  Receipt Date: 20140827
  Transmission Date: 20150326
  Serious: Yes (Hospitalization)
  Sender: FDA-Public Use
  Company Number: US-000819

PATIENT
  Age: 70 Year
  Sex: Male

DRUGS (16)
  1. NORTRIPTYLINE [Concomitant]
     Active Substance: NORTRIPTYLINE
  2. SOLUTIONS FOR PARENTAL NUTRITION [Concomitant]
  3. VANCOMYCIN [Concomitant]
     Active Substance: VANCOMYCIN
  4. CALCIUM 600 WITH VITAMIN D [Concomitant]
  5. TAMSULOSIN [Concomitant]
     Active Substance: TAMSULOSIN
  6. ASCORBIC ACID. [Concomitant]
     Active Substance: ASCORBIC ACID
  7. ALENDRONATE [Concomitant]
     Active Substance: ALENDRONATE SODIUM
  8. METOPROLOL [Concomitant]
     Active Substance: METOPROLOL
  9. CODEINE SULFATE. [Concomitant]
     Active Substance: CODEINE SULFATE
  10. NORMAL SALINE [Concomitant]
     Active Substance: SODIUM CHLORIDE
  11. PANTOPRAZOLE [Concomitant]
     Active Substance: PANTOPRAZOLE SODIUM
  12. FERROUS SULFATE [Concomitant]
     Active Substance: FERROUS SULFATE\FERROUS SULFATE, DRIED
  13. CALCITROL [Concomitant]
     Active Substance: CALCITRIOL
  14. GATTEX [Suspect]
     Active Substance: TEDUGLUTIDE\WATER
     Indication: SHORT-BOWEL SYNDROME
     Route: 058
     Dates: start: 20130802, end: 20131013
  15. ATROPINE W/ DIPHENOXYLATE [Concomitant]
  16. ALLOPURINOL. [Concomitant]
     Active Substance: ALLOPURINOL

REACTIONS (13)
  - Dysuria [None]
  - Weight increased [None]
  - Flatulence [None]
  - Infusion site infection [None]
  - Prostatomegaly [None]
  - Diarrhoea [None]
  - Renal impairment [None]
  - Nipple disorder [None]
  - Intestinal obstruction [None]
  - Drug dose omission [None]
  - Body temperature increased [None]
  - Micturition disorder [None]
  - Device related infection [None]

NARRATIVE: CASE EVENT DATE: 20131004
